FAERS Safety Report 6208894-4 (Version None)
Quarter: 2009Q2

REPORT INFORMATION
  Report Type: 
  Country: None (occurrence: None)
  Receive Date: 20090529
  Receipt Date: 20090526
  Transmission Date: 20091009
  Serious: Yes (Hospitalization)
  Sender: FDA-Public Use
  Company Number: B0575659A

PATIENT
  Sex: Male

DRUGS (1)
  1. AUGMENTIN '125' [Suspect]
     Indication: NASOPHARYNGITIS
     Dosage: 1G SINGLE DOSE
     Route: 048
     Dates: start: 20081105, end: 20081105

REACTIONS (5)
  - ANAPHYLACTIC REACTION [None]
  - ANGIOEDEMA [None]
  - DYSPNOEA [None]
  - ERYTHEMA [None]
  - MALAISE [None]
